FAERS Safety Report 8384422-2 (Version None)
Quarter: 2012Q2

REPORT INFORMATION
  Report Type: 
  Country: None (occurrence: None)
  Receive Date: 20120524
  Receipt Date: 20111014
  Transmission Date: 20120825
  Serious: Yes (Other)
  Sender: FDA-Public Use
  Company Number: CA-GLAXOSMITHKLINE-A0949052A

PATIENT
  Sex: Male

DRUGS (4)
  1. VOTRIENT [Suspect]
     Indication: RENAL CANCER METASTATIC
     Dosage: 800MG PER DAY
     Route: 048
     Dates: start: 20110915, end: 20120510
  2. ATENOLOL [Concomitant]
  3. MORPHINE [Concomitant]
  4. TYLENOL W/ CODEINE NO. 3 [Concomitant]

REACTIONS (2)
  - HEPATOTOXICITY [None]
  - NEOPLASM MALIGNANT [None]
